FAERS Safety Report 11170485 (Version 1)
Quarter: 2015Q2

REPORT INFORMATION
  Report Type: Report from Study
  Country: JP (occurrence: JP)
  Receive Date: 20150608
  Receipt Date: 20150608
  Transmission Date: 20150821
  Serious: Yes (Other)
  Sender: FDA-Public Use
  Company Number: JP-ROCHE-1582930

PATIENT

DRUGS (3)
  1. TRASTUZUMAB [Suspect]
     Active Substance: TRASTUZUMAB
     Indication: HER-2 POSITIVE BREAST CANCER
     Route: 042
  2. PERTUZUMAB [Suspect]
     Active Substance: PERTUZUMAB
     Indication: HER-2 POSITIVE BREAST CANCER
     Route: 065
  3. ERIBULIN [Suspect]
     Active Substance: ERIBULIN
     Indication: HER-2 POSITIVE BREAST CANCER
     Route: 065

REACTIONS (10)
  - Leukopenia [Unknown]
  - Lymphopenia [Unknown]
  - Otitis media [Unknown]
  - Diarrhoea [Unknown]
  - Pathological fracture [Unknown]
  - Hypokalaemia [Unknown]
  - Infusion related reaction [Unknown]
  - Stomatitis [Unknown]
  - Neutropenia [Unknown]
  - Skin disorder [Unknown]
